FAERS Safety Report 14836591 (Version 4)
Quarter: 2018Q2

REPORT INFORMATION
  Report Type: Spontaneous
  Country: FR (occurrence: FR)
  Receive Date: 20180502
  Receipt Date: 20180625
  Transmission Date: 20180711
  Serious: Yes (Hospitalization)
  Sender: FDA-Public Use
  Company Number: FR-CELGENEUS-FRA-20180304258

PATIENT
  Age: 71 Year
  Sex: Female
  Weight: 43 kg

DRUGS (28)
  1. DOLIPRANE [Concomitant]
     Active Substance: ACETAMINOPHEN
     Indication: PAIN PROPHYLAXIS
     Dosage: 3 GRAM
     Route: 048
     Dates: start: 20160626
  2. ZOMETA [Concomitant]
     Active Substance: ZOLEDRONIC ACID
     Indication: MUSCULOSKELETAL CHEST PAIN
     Route: 065
     Dates: start: 20160725
  3. OXYNORM [Concomitant]
     Active Substance: OXYCODONE HYDROCHLORIDE
     Indication: MUSCULOSKELETAL CHEST PAIN
     Route: 048
     Dates: start: 20180104
  4. OXYCONTIN [Concomitant]
     Active Substance: OXYCODONE HYDROCHLORIDE
     Indication: MUSCULOSKELETAL CHEST PAIN
  5. AERIUS [Concomitant]
     Active Substance: DESLORATADINE
     Indication: RASH
     Dosage: 5 MILLIGRAM
     Route: 048
  6. BACTRIM [Concomitant]
     Active Substance: SULFAMETHOXAZOLE\TRIMETHOPRIM
     Indication: INFECTION PROPHYLAXIS
     Route: 048
     Dates: start: 20160930
  7. DUROGESIC [Concomitant]
     Active Substance: FENTANYL
     Indication: BONE PAIN
     Route: 065
     Dates: start: 20170915
  8. GALACTOSE [Concomitant]
     Active Substance: GALACTOSE
     Indication: CONSTIPATION
     Dosage: 6 DOSAGE FORMS
     Route: 048
     Dates: start: 20160629
  9. SPASFON [Concomitant]
     Indication: ABDOMINAL PAIN
     Route: 048
     Dates: start: 20170623
  10. DICETEL [Concomitant]
     Active Substance: PINAVERIUM BROMIDE
     Indication: ABDOMINAL PAIN
     Dosage: 2 GRAM
     Route: 048
     Dates: start: 20170915
  11. ZARZIO [Concomitant]
     Active Substance: FILGRASTIM
     Indication: NEUTROPENIA
     Dosage: 30 IU (INTERNATIONAL UNIT)
     Route: 041
     Dates: start: 20171207
  12. MELAXOSE [Concomitant]
     Active Substance: LACTULOSE\PARAFFIN
     Indication: CONSTIPATION PROPHYLAXIS
     Route: 048
     Dates: start: 20160916
  13. KLEAN [Concomitant]
     Indication: PAIN PROPHYLAXIS
     Route: 065
  14. REVLIMID [Suspect]
     Active Substance: LENALIDOMIDE
     Indication: PLASMA CELL MYELOMA
     Dosage: 15 MILLIGRAM
     Route: 048
     Dates: start: 20160624, end: 20180201
  15. SKENAN [Concomitant]
     Active Substance: MORPHINE SULFATE
     Indication: PAIN PROPHYLAXIS
     Dosage: 60 MILLIGRAM
     Route: 048
     Dates: start: 20160622
  16. ACTISKENAN [Concomitant]
     Active Substance: MORPHINE SULFATE
     Indication: PAIN PROPHYLAXIS
     Dosage: 10 MILLIGRAM
     Route: 048
     Dates: start: 20160629
  17. SYMBICORT [Concomitant]
     Active Substance: BUDESONIDE\FORMOTEROL FUMARATE DIHYDRATE
     Indication: ASTHMA PROPHYLAXIS
     Route: 055
     Dates: start: 20160705
  18. DEBRIDAT [Concomitant]
     Active Substance: TRIMEBUTINE MALEATE
     Indication: ABDOMINAL PAIN
     Dosage: 3 GRAM
     Route: 048
     Dates: start: 20170623
  19. VALACICLOVIR [Concomitant]
     Active Substance: VALACYCLOVIR HYDROCHLORIDE
     Indication: PRODUCT USED FOR UNKNOWN INDICATION
     Route: 065
  20. OXYCONTIN [Concomitant]
     Active Substance: OXYCODONE HYDROCHLORIDE
     Indication: MUSCULOSKELETAL CHEST PAIN
     Dosage: 100 MILLIGRAM
     Route: 048
     Dates: start: 20160819
  21. KARDEGIC [Concomitant]
     Active Substance: ASPIRIN DL-LYSINE
     Indication: THROMBOSIS PROPHYLAXIS
     Dosage: 75 MILLIGRAM
     Route: 048
     Dates: start: 20160930
  22. DUROGESIC [Concomitant]
     Active Substance: FENTANYL
     Indication: MUSCULOSKELETAL CHEST PAIN
     Route: 065
     Dates: start: 20180104
  23. DARATUMUMAB [Concomitant]
     Active Substance: DARATUMUMAB
     Indication: PLASMA CELL MYELOMA
     Route: 041
     Dates: start: 20160624, end: 20180201
  24. LOVENOX [Concomitant]
     Active Substance: ENOXAPARIN SODIUM
     Indication: PRODUCT USED FOR UNKNOWN INDICATION
     Route: 065
  25. DEXAMETHASONE ORAL [Suspect]
     Active Substance: DEXAMETHASONE
     Indication: PLASMA CELL MYELOMA
     Dosage: 20 MILLIGRAM
     Route: 048
     Dates: start: 20160624, end: 20180201
  26. OXYNORM [Concomitant]
     Active Substance: OXYCODONE HYDROCHLORIDE
     Indication: MUSCULOSKELETAL CHEST PAIN
     Dosage: 10 MILLIGRAM
     Route: 048
     Dates: start: 20160819
  27. PHLOROGLUCINOL [Concomitant]
     Active Substance: PHLOROGLUCINOL
     Indication: DIARRHOEA
     Route: 048
     Dates: start: 20161212
  28. SKENAN [Concomitant]
     Active Substance: MORPHINE SULFATE
     Dosage: 20 MILLIGRAM
     Route: 048
     Dates: start: 20160626

REACTIONS (1)
  - Influenza [Recovered/Resolved]

NARRATIVE: CASE EVENT DATE: 20180206
